FAERS Safety Report 7767848-7 (Version None)
Quarter: 2011Q3

REPORT INFORMATION
  Report Type: 
  Country: None (occurrence: None)
  Receive Date: 20110922
  Receipt Date: 20100527
  Transmission Date: 20111222
  Serious: No
  Sender: FDA-Public Use
  Company Number: US-ASTRAZENECA-2010SE37318

PATIENT
  Age: 462 Month
  Sex: Female

DRUGS (10)
  1. SEROQUEL [Suspect]
     Dosage: 200 MG DAILY
     Route: 048
     Dates: start: 20000905
  2. LEXAPRO [Concomitant]
     Route: 048
     Dates: start: 20021211
  3. DEPAKOTE [Concomitant]
     Route: 048
     Dates: start: 20000905
  4. CELEXA [Concomitant]
     Route: 048
     Dates: start: 20010605
  5. KLONOPIN [Concomitant]
     Dosage: 3 MG TO 6 MG
     Route: 048
     Dates: start: 20000905
  6. REMERON [Concomitant]
     Route: 048
     Dates: start: 20001031
  7. EFFEXOR XR [Concomitant]
     Dosage: 75 MG TO 150 MG
     Route: 048
     Dates: start: 20000905
  8. HUMULIN INSULIN [Concomitant]
     Dosage: 20 UNITS AM
  9. IBUPROFEN [Concomitant]
     Dates: start: 20070202
  10. SINGULAIR [Concomitant]
     Dates: start: 20070530

REACTIONS (5)
  - HYPERSENSITIVITY [None]
  - ASTHMA [None]
  - TOOTH DISORDER [None]
  - CARPAL TUNNEL SYNDROME [None]
  - MAJOR DEPRESSION [None]
